FAERS Safety Report 18119543 (Version 1)
Quarter: 2020Q3

REPORT INFORMATION
  Report Type: Spontaneous
  Country: CN (occurrence: CN)
  Receive Date: 20200806
  Receipt Date: 20200806
  Transmission Date: 20201103
  Serious: Yes (Life-Threatening, Hospitalization, Disabling, Other)
  Sender: FDA-Public Use
  Company Number: CN-009507513-2008CHN001151

PATIENT
  Age: 65 Year
  Sex: Male
  Weight: 72.5 kg

DRUGS (2)
  1. SODIUM CHLORIDE. [Concomitant]
     Active Substance: SODIUM CHLORIDE
     Dosage: UNK UNK, Q3W
     Route: 041
     Dates: start: 20200403, end: 20200606
  2. KEYTRUDA [Suspect]
     Active Substance: PEMBROLIZUMAB
     Indication: GASTRIC CANCER
     Dosage: 200 MILLIGRAM, Q3W. VISITED THE OUTPATIENT FOR 4 COURSES.
     Route: 041
     Dates: start: 20200403, end: 20200606

REACTIONS (8)
  - Laboratory test abnormal [Recovering/Resolving]
  - Prohormone brain natriuretic peptide increased [Recovering/Resolving]
  - Myocarditis [Recovering/Resolving]
  - Pneumonia fungal [Recovering/Resolving]
  - Yersinia infection [Recovering/Resolving]
  - Malignant neoplasm progression [Unknown]
  - Myocardial necrosis marker increased [Recovering/Resolving]
  - Pneumonia [Recovering/Resolving]

NARRATIVE: CASE EVENT DATE: 202006
